FAERS Safety Report 23034042 (Version 2)
Quarter: 2023Q4

REPORT INFORMATION
  Report Type: Spontaneous
  Country: US (occurrence: US)
  Receive Date: 20231005
  Receipt Date: 20231016
  Transmission Date: 20240109
  Serious: Yes (Hospitalization)
  Sender: FDA-Public Use
  Company Number: US-TEVA-2023-US-2930633

PATIENT
  Age: 80 Year
  Sex: Female

DRUGS (11)
  1. ETHAMBUTOL [Suspect]
     Active Substance: ETHAMBUTOL HYDROCHLORIDE
     Indication: Tuberculoma of central nervous system
     Dosage: 1200 MILLIGRAM DAILY;
     Route: 065
  2. RIFAMPIN [Suspect]
     Active Substance: RIFAMPIN
     Indication: Tuberculoma of central nervous system
     Dosage: 600 MILLIGRAM DAILY;
     Route: 065
  3. RIFAMYCIN [Suspect]
     Active Substance: RIFAMYCIN
     Indication: Tuberculoma of central nervous system
     Dosage: RECEIVED INCREASING DOSES OF RIFAMYCIN EVERY 30 MINUTES, STARTING FROM 0.0002MG
     Route: 065
  4. RIFABUTIN [Suspect]
     Active Substance: RIFABUTIN
     Indication: Tuberculoma of central nervous system
     Route: 065
  5. DEXAMETHASONE [Concomitant]
     Active Substance: DEXAMETHASONE
     Indication: Vasogenic cerebral oedema
     Route: 065
  6. DEXAMETHASONE [Concomitant]
     Active Substance: DEXAMETHASONE
     Indication: Nervous system disorder
  7. ISONIAZID [Concomitant]
     Active Substance: ISONIAZID
     Indication: Tuberculoma of central nervous system
     Dosage: 300 MILLIGRAM DAILY;
     Route: 065
  8. PYRAZINAMIDE [Concomitant]
     Active Substance: PYRAZINAMIDE
     Indication: Tuberculoma of central nervous system
     Dosage: 2000 MILLIGRAM DAILY;
     Route: 065
  9. PYRAZINAMIDE [Concomitant]
     Active Substance: PYRAZINAMIDE
     Dosage: 1250 MILLIGRAM DAILY;
     Route: 065
  10. PYRIDOXINE [Concomitant]
     Active Substance: PYRIDOXINE
     Indication: Tuberculoma of central nervous system
     Dosage: 50 MILLIGRAM DAILY;
     Route: 065
  11. MOXIFLOXACIN [Concomitant]
     Active Substance: MOXIFLOXACIN
     Indication: Tuberculoma of central nervous system
     Dosage: 400 MILLIGRAM DAILY;
     Route: 065

REACTIONS (11)
  - Drug hypersensitivity [Unknown]
  - Dry eye [Recovered/Resolved]
  - Visual impairment [Recovered/Resolved]
  - Urticaria [Recovered/Resolved]
  - Pruritus allergic [Recovered/Resolved]
  - Angioedema [Recovered/Resolved]
  - Lip swelling [Recovered/Resolved]
  - Pharyngeal swelling [Recovered/Resolved]
  - Hypoaesthesia oral [Recovered/Resolved]
  - Oral pruritus [Recovered/Resolved]
  - Pruritus [Recovered/Resolved]
